FAERS Safety Report 4751077-5 (Version None)
Quarter: 2005Q3

REPORT INFORMATION
  Report Type: 
  Country: None (occurrence: None)
  Receive Date: 20050822
  Receipt Date: 20050808
  Transmission Date: 20060218
  Serious: Yes (Hospitalization, Other)
  Sender: FDA-Public Use
  Company Number: 2005-02918

PATIENT
  Age: 75 Year
  Sex: Male
  Weight: 81.6 kg

DRUGS (22)
  1. ALLOPURINOL [Suspect]
     Indication: GOUT
     Dosage: 100 MG, DAILY, ORAL
     Route: 048
     Dates: start: 19980101, end: 20041031
  2. COLCHICINE (WATSON LABORATORIES) (COLCHICINE) TABLET, 0.6MG [Suspect]
     Indication: GOUT
     Dosage: 0.6 G, DAILY, ORAL
     Route: 048
     Dates: start: 19980101, end: 20041031
  3. NESIRITIDE/PLACEBO () [Suspect]
     Indication: CARDIAC FAILURE CONGESTIVE
     Dosage: 0.01 MCG/KG/MIN, INTRAVENOUS
     Route: 042
     Dates: start: 20041014, end: 20041228
  4. COUMADIN [Concomitant]
  5. HYDRALAZINE [Concomitant]
  6. SYNTHROID [Concomitant]
  7. BISOPROLOL (BISOPROLOL) [Concomitant]
  8. PROTONIX ^WYETH-AYERST^ (PANTOPRAZOLE SODIUM) [Concomitant]
  9. DIOVAN ^CIBA-GIEGY^ (VALSARTAN) [Concomitant]
  10. PAXIL [Concomitant]
  11. NORVASC [Concomitant]
  12. SULFA-RETARD [Concomitant]
  13. HYDROCODONE [Concomitant]
  14. METOLAZONE TABLET [Concomitant]
  15. CALCIUM ACETATE (CALCIUM ACETATE) [Concomitant]
  16. LORTAB [Concomitant]
  17. EPOGEN [Concomitant]
  18. EFUDEX [Concomitant]
  19. MUPIROCIN (MUPIROCIN) [Concomitant]
  20. PANTOPRAZOLE SODIUM [Concomitant]
  21. PAROXETINE HCL [Concomitant]
  22. LASIX [Concomitant]

REACTIONS (8)
  - CARDIAC FAILURE CONGESTIVE [None]
  - CELLULITIS [None]
  - CONDITION AGGRAVATED [None]
  - NEPHROPATHY TOXIC [None]
  - POLYURIA [None]
  - RENAL EMBOLISM [None]
  - RENAL FAILURE ACUTE [None]
  - RENAL TUBULAR NECROSIS [None]
